FAERS Safety Report 8449377-0 (Version None)
Quarter: 2012Q2

REPORT INFORMATION
  Report Type: 
  Country: None (occurrence: None)
  Receive Date: 20120619
  Receipt Date: 20120614
  Transmission Date: 20120825
  Serious: Yes (Other)
  Sender: FDA-Public Use
  Company Number: FR-ROCHE-1078848

PATIENT
  Age: 81 Year
  Sex: Male

DRUGS (2)
  1. ZELBORAF [Suspect]
     Indication: PRODUCT USED FOR UNKNOWN INDICATION
  2. ZELBORAF [Suspect]

REACTIONS (2)
  - LUNG NEOPLASM MALIGNANT [None]
  - SQUAMOUS CELL CARCINOMA OF SKIN [None]
